FAERS Safety Report 7202074-1 (Version None)
Quarter: 2010Q4

REPORT INFORMATION
  Report Type: 
  Country: None (occurrence: None)
  Receive Date: 20101216
  Receipt Date: 20101206
  Transmission Date: 20110411
  Serious: Yes (Hospitalization)
  Sender: FDA-Public Use
  Company Number: OTH-SPN-2010007

PATIENT
  Age: 7 Month
  Sex: Male

DRUGS (6)
  1. CARBGLU 200MG DISPERSIBLE TABLETS [Suspect]
     Indication: ACIDOSIS
     Dosage: 800MG
     Dates: start: 20101101, end: 20101201
  2. PROPIMEX [Concomitant]
  3. BIOTIN [Concomitant]
  4. SODIUM BENZOATE [Concomitant]
  5. PHENYLBUTYRATE [Concomitant]
  6. L-CARNITINE [Concomitant]

REACTIONS (3)
  - AMMONIA INCREASED [None]
  - ANAEMIA [None]
  - LETHARGY [None]
